FAERS Safety Report 10489866 (Version 1)
Quarter: 2014Q4

REPORT INFORMATION
  Report Type: Spontaneous
  Country: KR (occurrence: KR)
  Receive Date: 20141002
  Receipt Date: 20141002
  Transmission Date: 20150528
  Serious: Yes (Other)
  Sender: FDA-Public Use
  Company Number: KR-BAYER-2014-143711

PATIENT
  Sex: Male

DRUGS (1)
  1. STIVARGA [Suspect]
     Active Substance: REGORAFENIB
     Indication: COLORECTAL CANCER METASTATIC
     Dosage: 160 MG, QD
     Route: 048
     Dates: end: 201408

REACTIONS (4)
  - Metastases to liver [None]
  - Ocular icterus [Not Recovered/Not Resolved]
  - Icterus index increased [Not Recovered/Not Resolved]
  - Jaundice [Not Recovered/Not Resolved]
